FAERS Safety Report 7610880-4 (Version None)
Quarter: 2011Q3

REPORT INFORMATION
  Report Type: 
  Country: None (occurrence: None)
  Receive Date: 20110715
  Receipt Date: 20110707
  Transmission Date: 20111222
  Serious: No
  Sender: FDA-Public Use
  Company Number: SE-BRISTOL-MYERS SQUIBB COMPANY-15631815

PATIENT
  Age: 79 Year
  Sex: Female

DRUGS (3)
  1. HYDREA [Suspect]
     Indication: POLYCYTHAEMIA VERA
     Route: 048
     Dates: end: 20101209
  2. FRAGMIN [Concomitant]
     Dosage: SOLUTION FOR INJECTION
     Dates: start: 20101101, end: 20101209
  3. INNOHEP [Suspect]
     Dosage: SOLUTION FOR INJECTION
     Route: 058
     Dates: start: 20101201, end: 20101209

REACTIONS (2)
  - THROMBOCYTOPENIA [None]
  - URINARY TRACT INFECTION [None]
